FAERS Safety Report 17052488 (Version 1)
Quarter: 2019Q4

REPORT INFORMATION
  Report Type: Spontaneous
  Country: CA (occurrence: CA)
  Receive Date: 20191120
  Receipt Date: 20191120
  Transmission Date: 20200122
  Serious: Yes (Death, Life-Threatening, Other)
  Sender: FDA-Public Use
  Company Number: CA-PFIZER INC-2019497560

PATIENT
  Age: 17 Year
  Sex: Male

DRUGS (1)
  1. MORPHINE SULFATE. [Suspect]
     Active Substance: MORPHINE SULFATE
     Indication: PROCEDURAL PAIN
     Dosage: 5 MG, UNK

REACTIONS (7)
  - Brain death [Fatal]
  - Bradycardia [Fatal]
  - Drug monitoring procedure incorrectly performed [Fatal]
  - Condition aggravated [Fatal]
  - Brain hypoxia [Fatal]
  - Seizure [Fatal]
  - Cardio-respiratory arrest [Fatal]
